FAERS Safety Report 8500950-0 (Version None)
Quarter: 2012Q2

REPORT INFORMATION
  Report Type: 
  Country: None (occurrence: None)
  Receive Date: 20120405
  Receipt Date: 20100216
  Transmission Date: 20120825
  Serious: Yes (Other)
  Sender: FDA-Public Use
  Company Number: PHEH2009US15361

PATIENT
  Age: 76 Year
  Sex: Female
  Weight: 47.1 kg

DRUGS (7)
  1. IPRATROPIUM BROMIDE [Concomitant]
  2. CLARITIN [Concomitant]
  3. FERROUS SULFATE TAB [Concomitant]
  4. VITAMIN D [Concomitant]
  5. RECLAST [Suspect]
     Indication: OSTEOPOROSIS
     Dosage: 5 MG YEARLY, INTRAVENOUS
     Route: 042
     Dates: start: 20091012
  6. PRILOSEC [Concomitant]
  7. ACETAMINOPHEN [Concomitant]

REACTIONS (7)
  - UVEITIS [None]
  - VISUAL ACUITY REDUCED [None]
  - EYE PAIN [None]
  - PHOTOPHOBIA [None]
  - EYE DISCHARGE [None]
  - EYE IRRITATION [None]
  - OCULAR HYPERAEMIA [None]
